FAERS Safety Report 13117169 (Version 2)
Quarter: 2017Q1

REPORT INFORMATION
  Report Type: Spontaneous
  Country: US (occurrence: US)
  Receive Date: 20170116
  Receipt Date: 20170202
  Transmission Date: 20170428
  Serious: Yes (Death, Hospitalization)
  Sender: FDA-Public Use
  Company Number: US-KADMON PHARMACEUTICALS, LLC-KAD201701-000133

PATIENT
  Age: 53 Year
  Sex: Female
  Weight: 123.4 kg

DRUGS (26)
  1. VOLTAREN [Concomitant]
     Active Substance: DICLOFENAC SODIUM
     Dosage: GEL
     Route: 061
  2. DULERA [Concomitant]
     Active Substance: FORMOTEROL FUMARATE DIHYDRATE\MOMETASONE FUROATE
     Route: 048
  3. ABILIFY [Concomitant]
     Active Substance: ARIPIPRAZOLE
     Dosage: TABLET
     Route: 048
  4. CEPHALEXIN 500 MG [Concomitant]
     Active Substance: CEPHALEXIN
     Dosage: CAPSULE
     Route: 048
  5. AMMONIUM LACTATE 12% [Concomitant]
     Dosage: CREAM
     Route: 061
  6. POTASSIUM CL 20 MEQ [Concomitant]
     Active Substance: POTASSIUM CHLORIDE
     Dosage: TABLET
     Route: 048
  7. ABILIFY [Concomitant]
     Active Substance: ARIPIPRAZOLE
     Dosage: TABLET
     Route: 048
  8. LASIX 40 MG [Concomitant]
     Dosage: TABLET
     Route: 048
  9. PENICILLIN 500 MG [Concomitant]
     Dosage: TABLET
     Route: 048
  10. ESCITALOPRAM OXALATE 10 MG [Concomitant]
     Dosage: TABLET
     Route: 048
  11. CITALOPRAM [Concomitant]
     Active Substance: CITALOPRAM HYDROBROMIDE
  12. VIEKIRA PAK [Suspect]
     Active Substance: DASABUVIR\OMBITASVIR\PARITAPREVIR\RITONAVIR
     Indication: CHRONIC HEPATITIS C
     Dosage: TABLET
     Route: 048
  13. LEXAPRO [Concomitant]
     Active Substance: ESCITALOPRAM OXALATE
     Dosage: TABLET
     Route: 048
  14. METHADONE 5MG/5ML SOLUTION [Concomitant]
     Indication: DRUG REHABILITATION
     Dosage: TABLET
     Route: 048
  15. ARIPIPRAZOLE 10 MG [Concomitant]
     Active Substance: ARIPIPRAZOLE
     Dosage: TABLET
     Route: 048
  16. SYNTHROID [Concomitant]
     Active Substance: LEVOTHYROXINE SODIUM
  17. RIBAVIRIN 200 MG TABLETS [Suspect]
     Active Substance: RIBAVIRIN
     Indication: CHRONIC HEPATITIS C
     Route: 048
  18. LEVOTHYROXINE 25 MCG [Concomitant]
     Dosage: TABLET
     Route: 048
  19. OMEPRAZOLE. [Concomitant]
     Active Substance: OMEPRAZOLE
  20. HARVONI [Suspect]
     Active Substance: LEDIPASVIR\SOFOSBUVIR
     Indication: CHRONIC HEPATITIS C
  21. FUROSEMIDE  20 MG [Concomitant]
     Active Substance: FUROSEMIDE
     Dosage: TABLET
     Route: 048
  22. HYDROCHLOROTHIAZIDE  25 MG [Concomitant]
     Active Substance: HYDROCHLOROTHIAZIDE
     Dosage: TABLET
     Route: 048
  23. FUROSEMIDE  20 MG [Concomitant]
     Active Substance: FUROSEMIDE
     Dosage: TABLET
     Route: 048
  24. CEPHALEXIN 500 MG [Concomitant]
     Active Substance: CEPHALEXIN
     Dosage: CAPSULE
     Route: 048
  25. CLINDAMYCIN 300 MG [Concomitant]
     Active Substance: CLINDAMYCIN PHOSPHATE
     Dosage: CAPSULE
     Route: 048
  26. CLINDAMYCIN 300 MG [Concomitant]
     Active Substance: CLINDAMYCIN PHOSPHATE
     Dosage: CAPSULE
     Route: 048

REACTIONS (21)
  - Cardiomyopathy [Unknown]
  - Electrolyte imbalance [Unknown]
  - Magnesium metabolism disorder [Unknown]
  - Cardio-respiratory arrest [Fatal]
  - Essential hypertension [Unknown]
  - Lymphoedema [Unknown]
  - Atrial fibrillation [Unknown]
  - Adverse drug reaction [Unknown]
  - Disseminated intravascular coagulation [Unknown]
  - Acute respiratory failure [Unknown]
  - Septic shock [Unknown]
  - Chronic hepatitis C [Unknown]
  - Hepatic cirrhosis [Unknown]
  - Thrombocytopenia [Unknown]
  - Blood hyposmosis [Unknown]
  - Hyponatraemia [Unknown]
  - Obesity [Unknown]
  - Hypothyroidism [Unknown]
  - Sepsis [Unknown]
  - Body mass index increased [Unknown]
  - Anaemia [Unknown]

NARRATIVE: CASE EVENT DATE: 20150813
